FAERS Safety Report 7950544-0 (Version None)
Quarter: 2011Q4

REPORT INFORMATION
  Report Type: 
  Country: None (occurrence: None)
  Receive Date: 20111130
  Receipt Date: 20111122
  Transmission Date: 20120403
  Serious: Yes (Hospitalization)
  Sender: FDA-Public Use
  Company Number: PHHY2011GB102251

PATIENT
  Age: 60 Year
  Sex: Female

DRUGS (8)
  1. CHLORPHENIRAMINE MALEATE [Concomitant]
  2. STEROIDS NOS [Concomitant]
  3. OMEPRAZOLE [Suspect]
     Dosage: 20 MG, QD
     Route: 048
     Dates: start: 20110817
  4. ADRENALIN IN OIL INJ [Concomitant]
  5. AMOXICILLIN [Concomitant]
  6. TESTOSTERONE [Concomitant]
     Indication: HYPERTONIC BLADDER
     Dates: start: 20110714, end: 20110926
  7. RAMIPRIL [Suspect]
     Indication: HYPERTENSION
     Dosage: 2.5 MG, QD
     Route: 048
     Dates: start: 20110801
  8. METRONIDAZOLE [Concomitant]

REACTIONS (3)
  - RHABDOMYOLYSIS [None]
  - MYALGIA [None]
  - MUSCULAR WEAKNESS [None]
